FAERS Safety Report 5608756-7 (Version None)
Quarter: 2008Q1

REPORT INFORMATION
  Report Type: 
  Country: None (occurrence: None)
  Receive Date: 20080131
  Receipt Date: 20080122
  Transmission Date: 20080703
  Serious: Yes (Other)
  Sender: FDA-Public Use
  Company Number: US-JNJFOC-20080105886

PATIENT
  Sex: Female

DRUGS (9)
  1. DURAGESIC-100 [Suspect]
     Indication: PAIN
     Route: 062
  2. CARDIZEM [Concomitant]
     Indication: HYPERTENSION
     Route: 048
  3. LISINOPRIL [Concomitant]
     Indication: HYPERTENSION
     Route: 048
  4. LEVOTHROID [Concomitant]
     Indication: THYROID DISORDER
     Route: 048
  5. PROZAC [Concomitant]
     Route: 048
  6. PLAQUENIL [Concomitant]
     Indication: SCLERODERMA
     Route: 048
  7. RESTASIS [Concomitant]
     Route: 031
  8. FOSOMAX [Concomitant]
     Route: 048
  9. VAGIFEM [Concomitant]
     Route: 067

REACTIONS (2)
  - DRUG SCREEN POSITIVE [None]
  - SPINAL FRACTURE [None]
